FAERS Safety Report 10361122 (Version 1)
Quarter: 2014Q3

REPORT INFORMATION
  Report Type: Spontaneous
  Country: IT (occurrence: None)
  Receive Date: 20140731
  Receipt Date: 20140731
  Transmission Date: 20150326
  Serious: Yes (Hospitalization)
  Sender: FDA-Public Use
  Company Number: 2014AP003740

PATIENT
  Age: 65 Year
  Sex: Male

DRUGS (2)
  1. DIAZEPAM (DIAZEPAM) ORAL DROPS [Suspect]
     Active Substance: DIAZEPAM
     Indication: DRUG ABUSE
     Dosage: 40 GTT, SINGLE
     Dates: start: 20140210, end: 20140210
  2. ZOLPIDEM (ZOLPIDEM) TABLET [Suspect]
     Active Substance: ZOLPIDEM TARTRATE
     Indication: DRUG ABUSE
     Dosage: 400 MG, SINGLE, ORAL
     Route: 048
     Dates: start: 20140210, end: 20140210

REACTIONS (2)
  - Sopor [None]
  - Drug abuse [None]

NARRATIVE: CASE EVENT DATE: 20140210
